FAERS Safety Report 8545474-X (Version None)
Quarter: 2012Q3

REPORT INFORMATION
  Report Type: 
  Country: None (occurrence: None)
  Receive Date: 20120727
  Receipt Date: 20111121
  Transmission Date: 20120928
  Serious: No
  Sender: FDA-Public Use
  Company Number: US-ASTRAZENECA-2011SE67826

PATIENT
  Age: 40 Year
  Sex: Male

DRUGS (2)
  1. SEROQUEL XR [Suspect]
     Route: 048
  2. SEROQUEL XR [Suspect]
     Route: 048

REACTIONS (8)
  - DRUG DOSE OMISSION [None]
  - FRUSTRATION [None]
  - AGITATION [None]
  - DEPRESSION [None]
  - NERVOUSNESS [None]
  - ANXIETY [None]
  - INCORRECT DOSE ADMINISTERED [None]
  - FEELING ABNORMAL [None]
